FAERS Safety Report 14478446 (Version 3)
Quarter: 2018Q4

REPORT INFORMATION
  Report Type: Spontaneous
  Country: US (occurrence: US)
  Receive Date: 20180202
  Receipt Date: 20181009
  Transmission Date: 20190204
  Serious: Yes (Other)
  Sender: FDA-Public Use
  Company Number: US-ASTRAZENECA-2018SE12566

PATIENT
  Age: 26711 Day
  Sex: Male
  Weight: 113.4 kg

DRUGS (120)
  1. NEXIUM [Suspect]
     Active Substance: ESOMEPRAZOLE MAGNESIUM
     Indication: GASTROOESOPHAGEAL REFLUX DISEASE
     Route: 048
     Dates: start: 20110104
  2. AMOXICILLIN. [Concomitant]
     Active Substance: AMOXICILLIN
     Indication: ANTIBIOTIC THERAPY
  3. TRICOR [Concomitant]
     Active Substance: FENOFIBRATE
     Route: 048
     Dates: start: 20150112
  4. FINASTERIDE. [Concomitant]
     Active Substance: FINASTERIDE
     Route: 048
     Dates: start: 20130618
  5. FLUTICASONE. [Concomitant]
     Active Substance: FLUTICASONE
     Dosage: 500-50 MCG TAKE PUFF BY MOUTH TWICE A DAY
     Dates: start: 20170110
  6. LEVOFLOXACIN. [Concomitant]
     Active Substance: LEVOFLOXACIN
     Dosage: 250.0MG UNKNOWN
     Route: 048
     Dates: start: 20080918
  7. SKELAXIN [Concomitant]
     Active Substance: METAXALONE
     Dosage: 800.0MG UNKNOWN
     Route: 048
     Dates: start: 20100527
  8. MECLIZINE HCL [Concomitant]
     Active Substance: MECLIZINE HYDROCHLORIDE
     Dosage: 12.5MG UNKNOWN
     Route: 048
     Dates: start: 20081207
  9. LISINOPRIL. [Concomitant]
     Active Substance: LISINOPRIL
     Dosage: 20.0MG UNKNOWN
     Route: 048
     Dates: start: 20021203
  10. LISINOPRIL. [Concomitant]
     Active Substance: LISINOPRIL
     Dosage: 10.0MG UNKNOWN
     Route: 048
     Dates: start: 20030604
  11. BUPROPION HYDROCHLORIDE. [Concomitant]
     Active Substance: BUPROPION HYDROCHLORIDE
     Route: 048
     Dates: start: 20170220
  12. LUBIPROSTONE [Concomitant]
     Active Substance: LUBIPROSTONE
     Route: 048
     Dates: start: 20130815
  13. DEXAMETHASONE + TOBRAMYCIN SULFATE [Concomitant]
     Route: 047
     Dates: start: 20130516
  14. FUROSEMIDE. [Concomitant]
     Active Substance: FUROSEMIDE
     Route: 048
     Dates: start: 20111214
  15. FUROSEMIDE. [Concomitant]
     Active Substance: FUROSEMIDE
     Route: 048
     Dates: start: 20151013
  16. ULTRAM [Concomitant]
     Active Substance: TRAMADOL HYDROCHLORIDE
     Dosage: 50.0MG EVERY 8 - 12 HOURS
     Route: 048
     Dates: start: 20130609
  17. NEXIUM [Suspect]
     Active Substance: ESOMEPRAZOLE MAGNESIUM
     Indication: GASTROOESOPHAGEAL REFLUX DISEASE
     Route: 048
     Dates: start: 2007, end: 2017
  18. NEXIUM [Suspect]
     Active Substance: ESOMEPRAZOLE MAGNESIUM
     Indication: GASTROOESOPHAGEAL REFLUX DISEASE
     Dosage: GENERIC
     Route: 048
     Dates: start: 2007, end: 2017
  19. MYLANTA [Concomitant]
     Active Substance: ALUMINUM HYDROXIDE\DIMETHICONE\MAGNESIUM HYDROXIDE
     Dosage: 3 TO 4 PILLS DAILY
  20. AMITIZA [Concomitant]
     Active Substance: LUBIPROSTONE
     Dosage: 24.0UG UNKNOWN
     Route: 048
     Dates: start: 20100620
  21. FERREX [Concomitant]
     Active Substance: FERRIC POLYSACCHARIDE COMPLEX
     Route: 048
     Dates: start: 20091116
  22. ROFECOXIB [Concomitant]
     Active Substance: ROFECOXIB
     Dosage: 25.0MG UNKNOWN
     Route: 048
     Dates: start: 20030604
  23. METHYLPREDNISOLONE. [Concomitant]
     Active Substance: METHYLPREDNISOLONE
     Dosage: TAKE AS DIRECTED WITH FOOD
     Route: 048
     Dates: start: 20140115
  24. PENICILLIN V POTASSIUM. [Concomitant]
     Active Substance: PENICILLIN V POTASSIUM
     Route: 048
     Dates: start: 20120730
  25. ROLAIDS [Concomitant]
     Active Substance: CALCIUM CARBONATE\MAGNESIUM HYDROXIDE
     Dosage: 3 TO 4 PILLS DAILY
  26. LOSARTAN POTASSIUM. [Concomitant]
     Active Substance: LOSARTAN POTASSIUM
     Route: 048
     Dates: start: 20170727
  27. LORATADINE. [Concomitant]
     Active Substance: LORATADINE
     Route: 048
     Dates: start: 20080826
  28. ATORVASTATIN CALCIUM. [Concomitant]
     Active Substance: ATORVASTATIN CALCIUM
     Route: 048
     Dates: start: 20161208
  29. LEVOFLOXACIN. [Concomitant]
     Active Substance: LEVOFLOXACIN
     Dosage: 500.0MG UNKNOWN
     Route: 048
     Dates: start: 20160328
  30. SUCRALFATE. [Concomitant]
     Active Substance: SUCRALFATE
     Dosage: 1.0G UNKNOWN
     Route: 048
     Dates: start: 20160129
  31. LANTUS SOLOSTAR [Concomitant]
     Active Substance: INSULIN GLARGINE
     Dates: start: 20161225
  32. AMITIZA [Concomitant]
     Active Substance: LUBIPROSTONE
     Dosage: 24.0UG UNKNOWN
     Route: 048
     Dates: start: 20090907
  33. METOPROLOL SUCCINATE. [Concomitant]
     Active Substance: METOPROLOL SUCCINATE
     Dosage: 50.0MG UNKNOWN
     Route: 048
     Dates: start: 20080902
  34. ROSIGLITAZONE MALEATE. [Concomitant]
     Active Substance: ROSIGLITAZONE MALEATE
     Dosage: 4.0MG UNKNOWN
     Route: 048
     Dates: start: 20070131
  35. ALBUTEROL SULFATE. [Concomitant]
     Active Substance: ALBUTEROL SULFATE
     Dates: start: 20160329
  36. OSELTAMIVIR PHOSPHATE. [Concomitant]
     Active Substance: OSELTAMIVIR PHOSPHATE
     Route: 048
     Dates: start: 20110228
  37. TESSALON [Concomitant]
     Active Substance: BENZONATATE
     Dosage: 100.0MG EVERY 8 - 12 HOURS
     Route: 048
     Dates: start: 20131210
  38. PREVACID [Suspect]
     Active Substance: LANSOPRAZOLE
     Route: 065
  39. ZEGERID [Suspect]
     Active Substance: OMEPRAZOLE\SODIUM BICARBONATE
     Route: 065
  40. SIMVASTATIN. [Concomitant]
     Active Substance: SIMVASTATIN
     Route: 048
     Dates: start: 20170727
  41. CARVEDILOL. [Concomitant]
     Active Substance: CARVEDILOL
     Route: 048
     Dates: start: 20170727
  42. CALCIFEROL [ERGOCALCIFEROL] [Concomitant]
     Active Substance: ERGOCALCIFEROL
     Dosage: ONE CAPSULE BY MOUTH EVERY WEEK
     Route: 048
     Dates: start: 20170706
  43. LORATADINE. [Concomitant]
     Active Substance: LORATADINE
     Route: 048
     Dates: start: 20170112
  44. AMITRIPTYLINE HYDROCHLORIDE. [Concomitant]
     Active Substance: AMITRIPTYLINE HYDROCHLORIDE
     Dosage: 10.0MG UNKNOWN
     Route: 048
     Dates: start: 20150812
  45. DICLOFENAC SODIUM. [Concomitant]
     Active Substance: DICLOFENAC SODIUM
     Route: 048
     Dates: start: 20150320
  46. DIOVAN [Concomitant]
     Active Substance: VALSARTAN
     Dosage: 320.0MG UNKNOWN
     Route: 048
     Dates: start: 20100306
  47. REPAGLINIDE. [Concomitant]
     Active Substance: REPAGLINIDE
     Dosage: 1.0MG UNKNOWN
     Route: 048
     Dates: start: 20091002
  48. KEFLEX [Concomitant]
     Active Substance: CEPHALEXIN
     Dosage: 750.0MG UNKNOWN
     Route: 048
     Dates: start: 20130603
  49. UROXATRAL [Concomitant]
     Active Substance: ALFUZOSIN HYDROCHLORIDE
     Dosage: 10.0MG UNKNOWN
     Route: 048
     Dates: start: 20080407
  50. LYRICA [Concomitant]
     Active Substance: PREGABALIN
     Route: 048
     Dates: start: 20151012
  51. NIACIN. [Concomitant]
     Active Substance: NIACIN
     Dosage: 2 TABLETS ORALLY EVERY NIGHT AT BEDTIME
     Route: 048
     Dates: start: 20090601
  52. GLIPIZIDE. [Concomitant]
     Active Substance: GLIPIZIDE
     Route: 048
     Dates: start: 20090601
  53. GABAPENTIN. [Concomitant]
     Active Substance: GABAPENTIN
     Dosage: 300.0MG UNKNOWN
     Route: 048
     Dates: start: 20061109
  54. ROFECOXIB [Concomitant]
     Active Substance: ROFECOXIB
     Dosage: 25.0MG UNKNOWN
     Route: 048
     Dates: start: 20030825
  55. PENTOXIFYLLINE. [Concomitant]
     Active Substance: PENTOXIFYLLINE
     Dosage: 400.0MG UNKNOWN
     Route: 048
     Dates: start: 20030324
  56. DIAZEPAM. [Concomitant]
     Active Substance: DIAZEPAM
     Dosage: 30 MINUTES BEFORE SURGERY
     Route: 048
     Dates: start: 20101228
  57. PRILOSEC [Suspect]
     Active Substance: OMEPRAZOLE MAGNESIUM
     Route: 048
  58. PROTONIX [Suspect]
     Active Substance: PANTOPRAZOLE SODIUM
     Route: 065
  59. LOSARTAN POTASSIUM. [Concomitant]
     Active Substance: LOSARTAN POTASSIUM
     Route: 048
     Dates: start: 20160308
  60. TRICOR [Concomitant]
     Active Substance: FENOFIBRATE
     Route: 048
     Dates: start: 20170727
  61. RAPAFLO [Concomitant]
     Active Substance: SILODOSIN
     Dosage: 8.0MG UNKNOWN
     Route: 048
     Dates: start: 20170209
  62. HUMALOG KWIKPEN [Concomitant]
     Active Substance: INSULIN LISPRO
     Dosage: U 100
     Dates: start: 20140911
  63. CIPROFLOXACIN HYDROCHLORIDE. [Concomitant]
     Active Substance: CIPROFLOXACIN HYDROCHLORIDE
     Dosage: 500.0MG UNKNOWN
     Route: 048
     Dates: start: 20090807
  64. DICYCLOMINE HCL [Concomitant]
     Active Substance: DICYCLOMINE HYDROCHLORIDE
     Route: 048
     Dates: start: 20090807
  65. AZITHROMYCIN ANHYDROUS. [Concomitant]
     Active Substance: AZITHROMYCIN ANHYDROUS
     Dosage: 250.0UG UNKNOWN
     Route: 048
     Dates: start: 20081224
  66. FLOMAX [Concomitant]
     Active Substance: TAMSULOSIN HYDROCHLORIDE
     Dosage: 0.4MG UNKNOWN
     Route: 048
     Dates: start: 20071116
  67. VALACICLOVIR HYDROCHLORIDE [Concomitant]
     Active Substance: VALACYCLOVIR HYDROCHLORIDE
     Route: 048
     Dates: start: 20150714
  68. METOLAZONE. [Concomitant]
     Active Substance: METOLAZONE
     Route: 048
     Dates: start: 20170216
  69. TESSALON [Concomitant]
     Active Substance: BENZONATATE
     Route: 048
     Dates: start: 20120817
  70. DEXILANT [Suspect]
     Active Substance: DEXLANSOPRAZOLE
     Route: 065
  71. ASPIRIN. [Concomitant]
     Active Substance: ASPIRIN
     Indication: ANTICOAGULANT THERAPY
  72. ACETAMINOPHEN. [Concomitant]
     Active Substance: ACETAMINOPHEN
     Indication: PAIN
  73. MONTELUKAST SODIUM. [Concomitant]
     Active Substance: MONTELUKAST SODIUM
     Route: 048
     Dates: start: 20170112
  74. AMLODIPINE BESYLATE. [Concomitant]
     Active Substance: AMLODIPINE BESYLATE
     Route: 048
     Dates: start: 20170112
  75. LANTUS SOLOSTAR [Concomitant]
     Active Substance: INSULIN GLARGINE
     Dates: start: 20140911
  76. AVODART [Concomitant]
     Active Substance: DUTASTERIDE
     Dosage: 0.5MG UNKNOWN
     Route: 048
     Dates: start: 20100115
  77. FINACEA [Concomitant]
     Active Substance: AZELAIC ACID
     Dosage: 15 % GEL
     Route: 061
     Dates: start: 20100206
  78. VIAGRA [Concomitant]
     Active Substance: SILDENAFIL CITRATE
     Dosage: 100.0MG UNKNOWN
     Route: 048
     Dates: start: 20100304
  79. REPAGLINIDE. [Concomitant]
     Active Substance: REPAGLINIDE
     Dosage: 1.0MG UNKNOWN
     Route: 048
     Dates: start: 20100304
  80. KEFLEX [Concomitant]
     Active Substance: CEPHALEXIN
     Dosage: 750.0MG UNKNOWN
     Route: 048
     Dates: start: 20080725
  81. FLOMAX [Concomitant]
     Active Substance: TAMSULOSIN HYDROCHLORIDE
     Dosage: TAKE 2 CAPSULES ORALLY EVERY DAY AFTER EVENING MEAL UNKNOWN
     Route: 048
     Dates: start: 20041214
  82. PRAVASTATIN SODIUM. [Concomitant]
     Active Substance: PRAVASTATIN SODIUM
     Route: 048
     Dates: start: 20040802
  83. CEFDINIR. [Concomitant]
     Active Substance: CEFDINIR
     Route: 048
     Dates: start: 20150720
  84. HYDROCODONE BIT/ACETAMINOPHEN [Concomitant]
     Route: 048
     Dates: start: 20121007
  85. CELEBREX [Concomitant]
     Active Substance: CELECOXIB
     Indication: PAIN
     Dates: start: 2017
  86. BUMEX [Concomitant]
     Active Substance: BUMETANIDE
     Indication: FLUID RETENTION
     Dates: start: 2017
  87. CARVEDILOL. [Concomitant]
     Active Substance: CARVEDILOL
     Route: 048
     Dates: start: 20170312
  88. TIOTROPIUM BROMIDE [Concomitant]
     Active Substance: TIOTROPIUM BROMIDE
     Route: 048
     Dates: start: 20170706
  89. TIOTROPIUM BROMIDE [Concomitant]
     Active Substance: TIOTROPIUM BROMIDE
     Route: 048
     Dates: start: 20161228
  90. RAPAFLO [Concomitant]
     Active Substance: SILODOSIN
     Dosage: 8.0MG UNKNOWN
     Route: 048
     Dates: start: 20150117
  91. SALMETEROL [Concomitant]
     Active Substance: SALMETEROL
     Dosage: 500-50 MCG TAKE PUFF BY MOUTH TWICE A DAY
     Dates: start: 20170110
  92. SKELAXIN [Concomitant]
     Active Substance: METAXALONE
     Dosage: 800.0MG UNKNOWN
     Route: 048
     Dates: start: 20081116
  93. DIOVAN [Concomitant]
     Active Substance: VALSARTAN
     Dosage: 160.0MG UNKNOWN
     Route: 048
     Dates: start: 20081128
  94. NASONEX [Concomitant]
     Active Substance: MOMETASONE FUROATE
     Dosage: SPRAY
     Dates: start: 20100220
  95. TRIAMCINOLONE ACETONIDE. [Concomitant]
     Active Substance: TRIAMCINOLONE ACETONIDE
     Route: 061
     Dates: start: 20091202
  96. STARLIX [Concomitant]
     Active Substance: NATEGLINIDE
     Route: 048
     Dates: start: 20090916
  97. TUSSIONEX PENNKINETIC [Concomitant]
     Active Substance: CHLORPHENIRAMINE\HYDROCODONE
     Dates: start: 20081224
  98. BACTROBAN [Concomitant]
     Active Substance: MUPIROCIN\MUPIROCIN CALCIUM
     Route: 061
     Dates: start: 20080625
  99. DOCUSATE SODIUM. [Concomitant]
     Active Substance: DOCUSATE SODIUM
     Route: 048
     Dates: start: 20160203
  100. LYRICA [Concomitant]
     Active Substance: PREGABALIN
     Route: 048
     Dates: start: 20150914
  101. METHOCARBAMOL. [Concomitant]
     Active Substance: METHOCARBAMOL
     Dosage: 500.0MG UNKNOWN
     Route: 048
     Dates: start: 20110705
  102. LEVETIRACETAM. [Concomitant]
     Active Substance: LEVETIRACETAM
     Dosage: 500.0MG UNKNOWN
     Route: 048
     Dates: start: 20091124
  103. GABAPENTIN. [Concomitant]
     Active Substance: GABAPENTIN
     Dosage: 300.0MG UNKNOWN
     Route: 048
     Dates: start: 20080824
  104. MELOXICAM. [Concomitant]
     Active Substance: MELOXICAM
     Route: 048
     Dates: start: 20050829
  105. ROFECOXIB [Concomitant]
     Active Substance: ROFECOXIB
     Dosage: 25.0MG UNKNOWN
     Route: 048
     Dates: start: 20030604
  106. VALACICLOVIR HYDROCHLORIDE [Concomitant]
     Active Substance: VALACYCLOVIR HYDROCHLORIDE
     Route: 048
     Dates: start: 20120916
  107. CETIRIZINE HYDROCHLORIDE. [Concomitant]
     Active Substance: CETIRIZINE HYDROCHLORIDE
     Route: 048
     Dates: start: 20130516
  108. GLYNASE [Concomitant]
     Active Substance: GLYBURIDE
     Dosage: 3.0MG UNKNOWN
     Route: 048
     Dates: start: 19961028
  109. ZANTAC [Concomitant]
     Active Substance: RANITIDINE HYDROCHLORIDE
  110. TUMS [Concomitant]
     Active Substance: CALCIUM CARBONATE
     Dosage: 3 TO 4 PILLS DAILY
  111. FINASTERIDE. [Concomitant]
     Active Substance: FINASTERIDE
     Route: 048
     Dates: start: 20170629
  112. PLAVIX [Concomitant]
     Active Substance: CLOPIDOGREL BISULFATE
     Route: 048
     Dates: start: 20170629
  113. MONTELUKAST SODIUM. [Concomitant]
     Active Substance: MONTELUKAST SODIUM
     Route: 048
     Dates: start: 20130626
  114. FLUTICASONE. [Concomitant]
     Active Substance: FLUTICASONE
     Dosage: TAKE PUFF BY MOUTH TWICE A DAY
     Dates: start: 20140120
  115. SITAGLIPTIN PHOSPHATE [Concomitant]
     Active Substance: SITAGLIPTIN PHOSPHATE
     Route: 048
     Dates: start: 20161230
  116. ACETAMINOPHEN AND CODEINE [Concomitant]
     Active Substance: ACETAMINOPHEN\CODEINE PHOSPHATE
     Dosage: 300 TO 30 MG
     Route: 048
     Dates: start: 20160315
  117. NASONEX [Concomitant]
     Active Substance: MOMETASONE FUROATE
     Dosage: SPRAY
     Dates: start: 20091209
  118. ACTOS [Concomitant]
     Active Substance: PIOGLITAZONE HYDROCHLORIDE
     Dosage: 15.0MG UNKNOWN
     Route: 048
     Dates: start: 20071205
  119. METOPROLOL TARTRATE. [Concomitant]
     Active Substance: METOPROLOL TARTRATE
     Dosage: 50.0MG UNKNOWN
     Route: 048
     Dates: start: 20040802
  120. GUAIFENESIN. [Concomitant]
     Active Substance: GUAIFENESIN
     Route: 048
     Dates: start: 20141020

REACTIONS (3)
  - Renal injury [Unknown]
  - Renal failure [Unknown]
  - Chronic kidney disease [Not Recovered/Not Resolved]

NARRATIVE: CASE EVENT DATE: 20111214
